FAERS Safety Report 6146823-2 (Version None)
Quarter: 2009Q2

REPORT INFORMATION
  Report Type: 
  Country: None (occurrence: None)
  Receive Date: 20090407
  Receipt Date: 20090325
  Transmission Date: 20091009
  Serious: Yes (Hospitalization)
  Sender: FDA-Public Use
  Company Number: US-TYCO HEALTHCARE/MALLINCKRODT-T200900747

PATIENT
  Age: 51 Year
  Sex: Male

DRUGS (7)
  1. OXYCODONE HCL EXTENDED-RELEASE [Suspect]
     Indication: PAIN
     Dosage: 40 MG, BID
     Route: 048
     Dates: start: 20081101
  2. HYDROMORPHONE HCL [Suspect]
     Indication: PAIN
     Dosage: 4 MG, PRN
     Route: 048
     Dates: start: 20081101
  3. SCH 721015 [Suspect]
     Indication: PERITONEAL MESOTHELIOMA MALIGNANT
     Dosage: 1X10E12 Q4DAYS X 2
     Route: 034
     Dates: start: 20090223, end: 20090226
  4. ATENOLOL [Suspect]
     Indication: ATRIAL FLUTTER
     Dosage: 50 MG, BID
     Route: 048
     Dates: start: 20080101
  5. LYRICA [Suspect]
     Indication: DEPRESSION
     Dosage: 100 MG, QD
     Route: 048
     Dates: start: 20070101
  6. LORAZEPAM [Suspect]
     Indication: INSOMNIA
     Dosage: 2 MG, PRN
     Route: 048
     Dates: start: 20080101
  7. LEVOTHYROXINE SODIUM [Concomitant]

REACTIONS (4)
  - CYTOKINE RELEASE SYNDROME [None]
  - HYPOTENSION [None]
  - LACK OF SPONTANEOUS SPEECH [None]
  - LETHARGY [None]
